FAERS Safety Report 23656530 (Version 1)
Quarter: 2024Q1

REPORT INFORMATION
  Report Type: Spontaneous
  Country: CA (occurrence: CA)
  Receive Date: 20240321
  Receipt Date: 20240321
  Transmission Date: 20240409
  Serious: Yes (Other)
  Sender: FDA-Public Use
  Company Number: None

PATIENT
  Age: 8 Year
  Sex: Female

DRUGS (2)
  1. NORDITROPIN [Suspect]
     Active Substance: SOMATROPIN
     Indication: Short stature
     Dosage: 200 MICROGRAM,( THERAPY DURATION: 474 DAYS), 600 ?G
     Route: 058
  2. REDNISONE [Concomitant]
     Dosage: UNK

REACTIONS (1)
  - Ear infection [Not Recovered/Not Resolved]
